FAERS Safety Report 15686294 (Version 2)
Quarter: 2018Q4

REPORT INFORMATION
  Report Type: Spontaneous
  Country: US (occurrence: US)
  Receive Date: 20181204
  Receipt Date: 20181213
  Transmission Date: 20190205
  Serious: Yes (Other)
  Sender: FDA-Public Use
  Company Number: US-GILEAD-2018-0377706

PATIENT
  Age: 22 Year
  Sex: Male
  Weight: 68.48 kg

DRUGS (1)
  1. TRUVADA [Suspect]
     Active Substance: EMTRICITABINE\TENOFOVIR DISOPROXIL FUMARATE
     Indication: PROPHYLAXIS AGAINST HIV INFECTION
     Dosage: 1 DF, QD
     Route: 048
     Dates: start: 20180813, end: 20181116

REACTIONS (3)
  - Treatment failure [Unknown]
  - Genotype drug resistance test positive [Unknown]
  - HIV test positive [Unknown]

NARRATIVE: CASE EVENT DATE: 201811
